FAERS Safety Report 4666212-7 (Version None)
Quarter: 2005Q2

REPORT INFORMATION
  Report Type: 
  Country: None (occurrence: None)
  Receive Date: 20050519
  Receipt Date: 20050419
  Transmission Date: 20051028
  Serious: No
  Sender: FDA-Public Use
  Company Number: PHBS2005JP05766

PATIENT
  Age: 65 Year
  Sex: Female

DRUGS (3)
  1. ACIROVEC [Suspect]
     Indication: HERPES ZOSTER
     Dosage: 800 MG, 5QD
     Route: 048
     Dates: start: 20050419, end: 20050419
  2. APLACE [Concomitant]
     Dosage: 1 DF, TID
     Route: 048
     Dates: start: 20050419, end: 20050419
  3. VOLTAREN [Suspect]
     Indication: HERPES ZOSTER
     Dosage: 75 MG/DAY
     Route: 048
     Dates: start: 20050419, end: 20050419

REACTIONS (3)
  - DYSPHONIA [None]
  - LARYNGEAL OEDEMA [None]
  - PHARYNX DISCOMFORT [None]
